FAERS Safety Report 23331227 (Version 1)
Quarter: 2023Q4

REPORT INFORMATION
  Report Type: Spontaneous
  Country: CN (occurrence: CN)
  Receive Date: 20231222
  Receipt Date: 20231222
  Transmission Date: 20240109
  Serious: Yes (Death)
  Sender: FDA-Public Use
  Company Number: CN-PFIZER INC-202300447091

PATIENT
  Age: 5 Year
  Sex: Female

DRUGS (24)
  1. VORICONAZOLE [Suspect]
     Active Substance: VORICONAZOLE
     Indication: Fusarium infection
     Dosage: 9 MG/KG
     Route: 042
     Dates: start: 20211230
  2. VORICONAZOLE [Suspect]
     Active Substance: VORICONAZOLE
     Dosage: 8 MG/KG, 2X/DAY
     Route: 042
  3. VORICONAZOLE [Suspect]
     Active Substance: VORICONAZOLE
     Dosage: UNK
     Dates: start: 20220118, end: 20220125
  4. VORICONAZOLE [Suspect]
     Active Substance: VORICONAZOLE
     Dosage: UNK
     Route: 047
     Dates: start: 20211231
  5. AMPHOTERICIN B [Suspect]
     Active Substance: AMPHOTERICIN B
     Indication: Fusarium infection
     Dosage: UNK
     Route: 047
     Dates: start: 20211231
  6. AMPHOTERICIN B [Suspect]
     Active Substance: AMPHOTERICIN B
     Dosage: UNK
     Dates: start: 20220118, end: 20220125
  7. AMPHOTERICIN B CHOLESTERYL SULFATE [Suspect]
     Active Substance: AMPHOTERICIN B CHOLESTERYL SULFATE
     Indication: Fusarium infection
     Dosage: UNK
     Route: 042
     Dates: start: 202201
  8. AMPHOTERICIN B CHOLESTERYL SULFATE [Suspect]
     Active Substance: AMPHOTERICIN B CHOLESTERYL SULFATE
     Dosage: UNK
     Route: 042
     Dates: start: 20220223, end: 20220312
  9. AMPHOTERICIN B [Suspect]
     Active Substance: AMPHOTERICIN B
     Indication: Fusarium infection
     Dosage: UNK
     Dates: start: 20220129, end: 20220222
  10. POSACONAZOLE [Suspect]
     Active Substance: POSACONAZOLE
     Indication: Fusarium infection
     Dosage: UNK
     Route: 042
     Dates: start: 20220110
  11. POSACONAZOLE [Suspect]
     Active Substance: POSACONAZOLE
     Dosage: UNK
     Dates: start: 20220129, end: 20220222
  12. POSACONAZOLE [Suspect]
     Active Substance: POSACONAZOLE
     Dosage: UNK
     Route: 042
     Dates: start: 20220223, end: 20220312
  13. CEFOPERAZONE\TAZOBACTAM SODIUM [Concomitant]
     Active Substance: CEFOPERAZONE\TAZOBACTAM SODIUM
     Indication: Infection
     Dosage: UNK
     Dates: start: 20211228
  14. AMIKACIN [Concomitant]
     Active Substance: AMIKACIN
     Indication: Klebsiella infection
     Dosage: UNK
     Dates: start: 20220219
  15. TIGECYCLINE [Concomitant]
     Active Substance: TIGECYCLINE
     Indication: Klebsiella infection
     Dosage: UNK
     Dates: start: 20220219
  16. ANFOLIC [Concomitant]
     Indication: Fusarium infection
     Dosage: UNK
     Route: 042
     Dates: start: 202101
  17. CEFTAZIDIME [Concomitant]
     Active Substance: CEFTAZIDIME
     Indication: Fusarium infection
     Dosage: UNK
     Dates: start: 20220225, end: 20220302
  18. AZTREONAM [Concomitant]
     Active Substance: AZTREONAM
     Indication: Fusarium infection
     Dosage: UNK
     Dates: start: 20220225, end: 20220302
  19. TEICOPLANIN [Concomitant]
     Active Substance: TEICOPLANIN
     Dosage: UNK
     Dates: start: 20211228, end: 20211231
  20. TEICOPLANIN [Concomitant]
     Active Substance: TEICOPLANIN
     Dosage: UNK
     Dates: start: 202201, end: 202201
  21. MEROPENEM [Concomitant]
     Active Substance: MEROPENEM
     Dosage: UNK
     Dates: start: 202201, end: 202201
  22. FLUCONAZOLE [Concomitant]
     Active Substance: FLUCONAZOLE
     Indication: Fusarium infection
     Dosage: UNK
     Route: 047
     Dates: start: 202201, end: 202201
  23. TOBRAMYCIN [Concomitant]
     Active Substance: TOBRAMYCIN
     Indication: Fusarium infection
     Dosage: UNK
     Route: 047
     Dates: start: 202202, end: 2022
  24. NATAMYCIN [Concomitant]
     Active Substance: NATAMYCIN
     Indication: Fusarium infection
     Dosage: UNK
     Route: 047
     Dates: start: 202202, end: 202202

REACTIONS (1)
  - Drug ineffective [Fatal]

NARRATIVE: CASE EVENT DATE: 20220301
